FAERS Safety Report 6333439-8 (Version None)
Quarter: 2009Q3

REPORT INFORMATION
  Report Type: 
  Country: None (occurrence: None)
  Receive Date: 20090828
  Receipt Date: 20090819
  Transmission Date: 20100115
  Serious: Yes (Hospitalization)
  Sender: FDA-Public Use
  Company Number: PHHY2009CN35504

PATIENT
  Age: 12 Year
  Sex: Male

DRUGS (3)
  1. CARBAMAZEPINE [Suspect]
     Indication: EPILEPSY
     Dosage: UNK
  2. CARBAMAZEPINE [Suspect]
     Dosage: 50 MG, UNK
  3. PHENOBARBITAL [Concomitant]
     Indication: EPILEPSY
     Dosage: UNK

REACTIONS (11)
  - DECREASED ACTIVITY [None]
  - DRUG HYPERSENSITIVITY [None]
  - DYSPNOEA [None]
  - FATIGUE [None]
  - FLUSHING [None]
  - HYPOAESTHESIA [None]
  - LYMPHADENOPATHY [None]
  - PYREXIA [None]
  - RASH MORBILLIFORM [None]
  - TONSILLITIS [None]
  - UPPER RESPIRATORY TRACT INFECTION [None]
